FAERS Safety Report 9084160 (Version 1)
Quarter: 2013Q1

REPORT INFORMATION
  Report Type: Report from Study
  Country: US (occurrence: US)
  Receive Date: 20130130
  Receipt Date: 20130130
  Transmission Date: 20140127
  Serious: No
  Sender: FDA-Public Use
  Company Number: US-ABBOTT-12P-163-0981319-00

PATIENT
  Age: 49 Year
  Sex: Male

DRUGS (6)
  1. HUMIRA [Suspect]
     Indication: CROHN^S DISEASE
     Dates: start: 20120817, end: 20120817
  2. HUMIRA [Suspect]
     Dates: start: 20120831, end: 20120831
  3. HUMIRA [Suspect]
     Dates: start: 20120914
  4. NEXIUM [Concomitant]
     Indication: GASTROOESOPHAGEAL REFLUX DISEASE
     Dosage: DAILY
     Route: 048
  5. DIOVAN [Concomitant]
     Indication: HYPERTENSION
     Dosage: DAILY
     Route: 048
  6. ASACOL [Concomitant]
     Indication: CROHN^S DISEASE
     Dosage: 3 TABS TWICE DAILY

REACTIONS (1)
  - Incorrect dose administered [Unknown]
